FAERS Safety Report 4765728-2 (Version None)
Quarter: 2005Q3

REPORT INFORMATION
  Report Type: 
  Country: None (occurrence: None)
  Receive Date: 20050906
  Receipt Date: 20050824
  Transmission Date: 20060218
  Serious: Yes (Death)
  Sender: FDA-Public Use
  Company Number: FR_050806993

PATIENT
  Age: 35 Year
  Sex: Male

DRUGS (3)
  1. ZYPREXA [Suspect]
     Indication: PSYCHOTIC DISORDER
     Dosage: 10 MG DAY
     Dates: start: 20050601
  2. CLOPIXOL (ZUCLOPENTHIXOL HYDROCHLORIDE) [Concomitant]
  3. METHADONE HCL [Concomitant]

REACTIONS (1)
  - DEATH [None]
